FAERS Safety Report 25277359 (Version 5)
Quarter: 2025Q4

REPORT INFORMATION
  Report Type: Report from Study
  Country: US (occurrence: US)
  Receive Date: 20250507
  Receipt Date: 20251003
  Transmission Date: 20260117
  Serious: Yes (Death, Hospitalization, Other)
  Sender: ABBVIE
  Company Number: US-ABBVIE-6267900

PATIENT
  Age: 75 Year
  Sex: Male

DRUGS (2)
  1. VENCLEXTA [Suspect]
     Active Substance: VENETOCLAX
     Indication: Acute myeloid leukaemia
     Dosage: END DATE APR 2025
     Route: 048
     Dates: start: 202504
  2. VENCLEXTA [Suspect]
     Active Substance: VENETOCLAX
     Indication: Acute myeloid leukaemia
     Dosage: THE PATIENT HAD BEEN WITHOUT THE MEDICINE FOR APPROXIMATELY 5 DAYS.?FIRST ADMIN DATE AND LAST ADM...
     Route: 048

REACTIONS (7)
  - Death [Fatal]
  - Full blood count decreased [Unknown]
  - Haematochezia [Unknown]
  - Platelet count decreased [Unknown]
  - Fatigue [Unknown]
  - Suicidal ideation [Unknown]
  - White blood cell count decreased [Unknown]

NARRATIVE: CASE EVENT DATE: 20250101
